FAERS Safety Report 13404463 (Version 1)
Quarter: 2017Q2

REPORT INFORMATION
  Report Type: Spontaneous
  Country: US (occurrence: US)
  Receive Date: 20170405
  Receipt Date: 20170405
  Transmission Date: 20170830
  Serious: Yes (Other)
  Sender: FDA-Public Use
  Company Number: None

PATIENT
  Age: 39 Year
  Sex: Female
  Weight: 116.1 kg

DRUGS (8)
  1. ADVAIR HFA [Concomitant]
     Active Substance: FLUTICASONE PROPIONATE\SALMETEROL XINAFOATE
  2. GABA SUPPLEMENT [Concomitant]
     Active Substance: .GAMMA.-AMINOBUTYRIC ACID
  3. CYMBALTIA [Concomitant]
  4. VISTERIL [Concomitant]
  5. METHYLPREDNISOLONE. [Suspect]
     Active Substance: METHYLPREDNISOLONE
     Indication: HYPERSENSITIVITY
     Dosage: ?          QUANTITY:21 TABLET(S);OTHER FREQUENCY:DIRECTIONS INSIDE;?
     Route: 048
     Dates: start: 20170404, end: 20170404
  6. VENTELIN [Concomitant]
  7. MELATONIN [Concomitant]
     Active Substance: MELATONIN
  8. GABAPENTIN. [Concomitant]
     Active Substance: GABAPENTIN

REACTIONS (5)
  - Headache [None]
  - Chest pain [None]
  - Heart rate irregular [None]
  - Disorientation [None]
  - Nausea [None]

NARRATIVE: CASE EVENT DATE: 20170404
